FAERS Safety Report 16916372 (Version 2)
Quarter: 2019Q4

REPORT INFORMATION
  Report Type: Report from Study
  Country: US (occurrence: US)
  Receive Date: 20191014
  Receipt Date: 20191220
  Transmission Date: 20200122
  Serious: No
  Sender: FDA-Public Use
  Company Number: US-JNJFOC-20191011011

PATIENT
  Age: 34 Year
  Sex: Male
  Weight: 77.18 kg

DRUGS (7)
  1. CLONAZEPAM. [Concomitant]
     Active Substance: CLONAZEPAM
     Dosage: ONGOING
  2. DESIPRAMINE [Suspect]
     Active Substance: DESIPRAMINE
     Indication: MAJOR DEPRESSION
     Route: 048
     Dates: start: 20191004, end: 20191121
  3. LAMOTRIGINE. [Concomitant]
     Active Substance: LAMOTRIGINE
     Dosage: ONGOING
  4. SPRAVATO [Suspect]
     Active Substance: ESKETAMINE
     Indication: MAJOR DEPRESSION
  5. TRILEPTAL [Concomitant]
     Active Substance: OXCARBAZEPINE
  6. QUETIAPINE. [Concomitant]
     Active Substance: QUETIAPINE
     Dosage: ONGOING
  7. SPRAVATO [Suspect]
     Active Substance: ESKETAMINE
     Indication: DEPRESSION

REACTIONS (2)
  - Headache [Recovered/Resolved]
  - Drug ineffective [Unknown]

NARRATIVE: CASE EVENT DATE: 20191002
